FAERS Safety Report 8439246 (Version 2)
Quarter: 2013Q2

REPORT INFORMATION
  Report Type: Spontaneous
  Country: US (occurrence: None)
  Receive Date: 20120104
  Receipt Date: 20120508
  Transmission Date: 20140414
  Serious: Yes (Other)
  Sender: FDA-Public Use
  Company Number: 2011HGS-002791

PATIENT
  Age: 62 Year
  Sex: Female
  Weight: 98 kg

DRUGS (23)
  1. BENLYSTA [Suspect]
     Indication: SYSTEMIC LUPUS ERYTHEMATOSUS
     Route: 041
     Dates: start: 20111102
  2. HYDROCHLOROTHIAZIDE (HYDROCHLOROTHIAZIDE) (HYDROCHLOROTHIAZIDE) [Concomitant]
  3. LASIX (FUROSEMIDE) (FUROSEMIDE) [Concomitant]
  4. NEXIUM (ESOMEPRAZOLE MAGNESIUM) (ESOMEPRAZOLE MAGNESIUM) [Concomitant]
  5. NUVIGIL (ARMODAFINIL) (ARMODAFINIL) [Concomitant]
  6. ADDERALL XR (OBETROL /01345401/) (DEXAMFETAMINE SULFATE, AMFETAMINE SULFATE, AMFETAMINE ASPARTATE, DEXAMFETAMINE SACCHARATE) [Concomitant]
  7. CYMBALTA (DULOXETINE HYDROCHLORIDE) (DULOXETINE HYDROCHLORIDE) [Concomitant]
  8. CRESTOR (ROSUVASTATIN CALCIUM) (ROSUVASTATIN CALCIUM) [Concomitant]
  9. ZANAFLEX (TIZANIDINE HYDROCHLORIDE) (TIZANIDINE HYDROCHLORIDE) [Concomitant]
  10. TRAZODONE (TRAZODONE) (TRAZODONE) [Concomitant]
  11. HEMAX (ERYTHROPOIETIN) (ERYTHROPOIETIN) [Concomitant]
  12. GABAPENTIN (GABAPENTIN) (GABAPENTIN) [Concomitant]
  13. LIBRAX (LIBRAX /00033301/) (CHLORDIAZEPOXIDE HYDROCHLORIDE, CLIDINIUM BROMIDE) [Concomitant]
  14. BONIVA (IBANDRONATE SODIUM) (IBANDRONATE SODIUM) [Concomitant]
  15. CALTRATE (CALCIUM CARBONATE) (CALCIUM CARBONATE) [Concomitant]
  16. CO Q 10 (UBIDECARENONE) (UBIDECARENONE) [Concomitant]
  17. VITAMIN B12 (CYANOCOBALAMIN) (CYANOCOBALAMIN) [Concomitant]
  18. VITAMIN D3 (COLECALCIFEROL) (COLECALCIFEROL) [Concomitant]
  19. FOLIC ACID (FOLIC ACID) (FOLIC ACID) [Concomitant]
  20. POTASSIUM GLUCONATE (POTASSIUM GLUCONATE) (POTASSIUM GLUCONATE) [Concomitant]
  21. CENTRUM SILVER (CENTRUM SILVER /01292501/) (ASCORBIC ACID, TOCOPHERYL ACETATE, RETINOL, ZINC, CALCIUM, VITAMINS NOS, MINERALS NOS, VITAMIN B NOS) [Concomitant]
  22. ZOFRAN (ONDANSETRON) (ONDANSETRON) [Concomitant]
  23. PREDNISONE (PREDNISONE) (PREDNISONE) [Concomitant]

REACTIONS (6)
  - WHEEZING [None]
  - CHEST PAIN [None]
  - OEDEMA PERIPHERAL [None]
  - Chest discomfort [None]
  - Dyspnoea [None]
  - Diarrhoea [None]
